FAERS Safety Report 8224426-3 (Version None)
Quarter: 2012Q1

REPORT INFORMATION
  Report Type: 
  Country: None (occurrence: None)
  Receive Date: 20120319
  Receipt Date: 20120313
  Transmission Date: 20120608
  Serious: Yes (Death, Life-Threatening, Hospitalization, Other)
  Sender: FDA-Public Use
  Company Number: 2012PL000024

PATIENT
  Age: 88 Year
  Sex: Male

DRUGS (1)
  1. IMURAN [Suspect]
     Indication: INTERSTITIAL LUNG DISEASE

REACTIONS (12)
  - DRUG RASH WITH EOSINOPHILIA AND SYSTEMIC SYMPTOMS [None]
  - RASH MACULAR [None]
  - HYPOTENSION [None]
  - URINE OUTPUT DECREASED [None]
  - RESPIRATORY FAILURE [None]
  - LUNG INFILTRATION [None]
  - MULTI-ORGAN FAILURE [None]
  - SHOCK [None]
  - ACUTE RESPIRATORY DISTRESS SYNDROME [None]
  - TREMOR [None]
  - PRURITUS [None]
  - ACIDOSIS [None]
